FAERS Safety Report 24892928 (Version 1)
Quarter: 2025Q1

REPORT INFORMATION
  Report Type: Spontaneous
  Country: US (occurrence: US)
  Receive Date: 20250128
  Receipt Date: 20250128
  Transmission Date: 20250409
  Serious: Yes (Hospitalization)
  Sender: STRIDES
  Company Number: US-STRIDES ARCOLAB LIMITED-2024SP016584

PATIENT
  Age: 7 Decade
  Sex: Male

DRUGS (36)
  1. AZITHROMYCIN [Suspect]
     Active Substance: AZITHROMYCIN
     Indication: Osteomyelitis bacterial
     Route: 065
  2. AZITHROMYCIN [Suspect]
     Active Substance: AZITHROMYCIN
     Indication: Mycobacterium abscessus infection
  3. AZITHROMYCIN [Suspect]
     Active Substance: AZITHROMYCIN
     Indication: Soft tissue infection
  4. DOXYCYCLINE [Suspect]
     Active Substance: DOXYCYCLINE
     Indication: Evidence based treatment
     Route: 065
  5. MEROPENEM [Suspect]
     Active Substance: MEROPENEM
     Indication: Mycobacterium abscessus infection
     Route: 065
  6. MEROPENEM [Suspect]
     Active Substance: MEROPENEM
     Indication: Osteomyelitis bacterial
  7. MEROPENEM [Suspect]
     Active Substance: MEROPENEM
     Indication: Soft tissue infection
  8. IMIPENEM [Suspect]
     Active Substance: IMIPENEM
     Indication: Soft tissue infection
     Route: 065
  9. IMIPENEM [Suspect]
     Active Substance: IMIPENEM
     Indication: Osteomyelitis bacterial
  10. IMIPENEM [Suspect]
     Active Substance: IMIPENEM
     Indication: Mycobacterium abscessus infection
  11. ERAVACYCLINE [Suspect]
     Active Substance: ERAVACYCLINE
     Indication: Soft tissue infection
     Route: 065
  12. ERAVACYCLINE [Suspect]
     Active Substance: ERAVACYCLINE
     Indication: Mycobacterium abscessus infection
  13. ERAVACYCLINE [Suspect]
     Active Substance: ERAVACYCLINE
     Indication: Osteomyelitis bacterial
  14. LINEZOLID [Suspect]
     Active Substance: LINEZOLID
     Indication: Soft tissue infection
     Route: 065
  15. LINEZOLID [Suspect]
     Active Substance: LINEZOLID
     Indication: Mycobacterium abscessus infection
  16. LINEZOLID [Suspect]
     Active Substance: LINEZOLID
     Indication: Osteomyelitis bacterial
  17. AMIKACIN [Suspect]
     Active Substance: AMIKACIN
     Indication: Soft tissue infection
     Route: 042
  18. AMIKACIN [Suspect]
     Active Substance: AMIKACIN
     Indication: Mycobacterium abscessus infection
     Route: 065
  19. AMIKACIN [Suspect]
     Active Substance: AMIKACIN
     Indication: Osteomyelitis bacterial
  20. TEDIZOLID [Suspect]
     Active Substance: TEDIZOLID
     Indication: Soft tissue infection
     Route: 065
  21. TEDIZOLID [Suspect]
     Active Substance: TEDIZOLID
     Indication: Mycobacterium abscessus infection
  22. TEDIZOLID [Suspect]
     Active Substance: TEDIZOLID
     Indication: Osteomyelitis bacterial
  23. BEDAQUILINE [Suspect]
     Active Substance: BEDAQUILINE
     Indication: Soft tissue infection
     Route: 065
  24. BEDAQUILINE [Suspect]
     Active Substance: BEDAQUILINE
     Indication: Mycobacterium abscessus infection
  25. BEDAQUILINE [Suspect]
     Active Substance: BEDAQUILINE
     Indication: Osteomyelitis bacterial
  26. LEVOFLOXACIN [Suspect]
     Active Substance: LEVOFLOXACIN
     Indication: Evidence based treatment
     Route: 065
  27. AMOXICILLIN\CLAVULANIC ACID [Suspect]
     Active Substance: AMOXICILLIN\CLAVULANIC ACID
     Indication: Evidence based treatment
     Route: 065
  28. CLOFAZIMINE [Concomitant]
     Active Substance: CLOFAZIMINE
     Indication: Soft tissue infection
     Route: 065
  29. CLOFAZIMINE [Concomitant]
     Active Substance: CLOFAZIMINE
     Indication: Mycobacterium abscessus infection
  30. CLOFAZIMINE [Concomitant]
     Active Substance: CLOFAZIMINE
     Indication: Osteomyelitis bacterial
  31. OMADACYCLINE [Concomitant]
     Active Substance: OMADACYCLINE
     Indication: Soft tissue infection
     Route: 065
  32. OMADACYCLINE [Concomitant]
     Active Substance: OMADACYCLINE
     Indication: Mycobacterium abscessus infection
  33. OMADACYCLINE [Concomitant]
     Active Substance: OMADACYCLINE
     Indication: Osteomyelitis bacterial
  34. AVIBACTAM SODIUM\CEFTAZIDIME [Concomitant]
     Active Substance: AVIBACTAM SODIUM\CEFTAZIDIME
     Indication: Mycobacterium abscessus infection
     Route: 065
  35. AVIBACTAM SODIUM\CEFTAZIDIME [Concomitant]
     Active Substance: AVIBACTAM SODIUM\CEFTAZIDIME
     Indication: Osteomyelitis bacterial
  36. AVIBACTAM SODIUM\CEFTAZIDIME [Concomitant]
     Active Substance: AVIBACTAM SODIUM\CEFTAZIDIME
     Indication: Soft tissue infection

REACTIONS (3)
  - Drug ineffective [Unknown]
  - Blood creatinine increased [Unknown]
  - Off label use [Unknown]
